FAERS Safety Report 18782333 (Version 1)
Quarter: 2021Q1

REPORT INFORMATION
  Report Type: Spontaneous
  Country: US (occurrence: US)
  Receive Date: 20210125
  Receipt Date: 20210125
  Transmission Date: 20210419
  Serious: No
  Sender: FDA-Public Use
  Company Number: US-ALLERGAN-2006535US

PATIENT
  Age: 70 Year
  Sex: Female

DRUGS (2)
  1. RESTASIS [Suspect]
     Active Substance: CYCLOSPORINE
     Indication: DRY EYE
     Dosage: 1 GTT EACH EYE BID
     Route: 047
  2. RESTASIS [Suspect]
     Active Substance: CYCLOSPORINE
     Dosage: 1 GTT EACH EYE QD
     Route: 047

REACTIONS (5)
  - Accidental exposure to product [Unknown]
  - Incorrect dose administered [Unknown]
  - Eye pain [Unknown]
  - Product quality issue [Unknown]
  - Product physical consistency issue [Unknown]
